FAERS Safety Report 9537851 (Version 2)
Quarter: 2013Q3

REPORT INFORMATION
  Report Type: Spontaneous
  Country: US (occurrence: US)
  Receive Date: 20130919
  Receipt Date: 20130927
  Transmission Date: 20140515
  Serious: Yes (Hospitalization)
  Sender: FDA-Public Use
  Company Number: PHEH2013US019409

PATIENT
  Age: 38 Year
  Sex: Female

DRUGS (11)
  1. GILENYA [Suspect]
     Indication: RELAPSING-REMITTING MULTIPLE SCLEROSIS
     Dosage: 0.5 MG, QD
     Route: 048
     Dates: start: 20130401
  2. ELAVIL [Concomitant]
  3. XANAX [Concomitant]
  4. TRAZODONE [Concomitant]
  5. BAKLOFEN [Concomitant]
  6. ABILIFY [Concomitant]
  7. FLUOXETINE HYDROCHLORIDE [Concomitant]
     Dosage: 1 DF, DAILY
     Route: 048
     Dates: start: 20110223
  8. ANTIDEPRESSANTS [Concomitant]
  9. ALPRAZOLAM [Concomitant]
     Dosage: 1 DF, TID
     Route: 048
     Dates: start: 20120411
  10. BACLOFEN [Concomitant]
     Dosage: 2 DF, AT BED TIME
     Route: 048
     Dates: start: 20111129
  11. VITAMIN B12 [Concomitant]
     Dosage: 1 DF, DAILY AS DIRECTED

REACTIONS (28)
  - Grand mal convulsion [Recovering/Resolving]
  - Convulsion [Recovering/Resolving]
  - Tremor [Unknown]
  - Loss of consciousness [Recovering/Resolving]
  - Nausea [Unknown]
  - Visual impairment [Unknown]
  - Fall [Unknown]
  - Fatigue [Unknown]
  - Dizziness [Unknown]
  - Somnolence [Unknown]
  - Amnesia [Unknown]
  - Asthenia [Unknown]
  - Muscle rigidity [Unknown]
  - Multiple sclerosis relapse [Recovering/Resolving]
  - Central nervous system lesion [Unknown]
  - Red cell distribution width decreased [Unknown]
  - Mean platelet volume increased [Unknown]
  - Granulocyte count increased [Unknown]
  - Monocyte count increased [Unknown]
  - Red blood cells CSF positive [Unknown]
  - Blood glucose increased [Unknown]
  - Blood calcium decreased [Unknown]
  - Protein total decreased [Unknown]
  - Blood albumin decreased [Unknown]
  - Alanine aminotransferase decreased [Unknown]
  - Aspartate aminotransferase decreased [Unknown]
  - Blood magnesium decreased [Unknown]
  - Lymphocyte count decreased [Unknown]
